FAERS Safety Report 10236762 (Version 1)
Quarter: 2014Q2

REPORT INFORMATION
  Report Type: Spontaneous
  Country: JP (occurrence: JP)
  Receive Date: 20140613
  Receipt Date: 20140613
  Transmission Date: 20141212
  Serious: Yes (Hospitalization, Other)
  Sender: FDA-Public Use
  Company Number: JP-ACTAVIS-2014-12384

PATIENT
  Age: 59 Year
  Sex: Male
  Weight: 64 kg

DRUGS (2)
  1. IRINOTECAN (UNKNOWN) [Suspect]
     Indication: METASTATIC GASTRIC CANCER
     Dosage: 150 MG/M2, UNKNOWN
     Route: 065
  2. MITOMYCIN (UNKNOWN) [Suspect]
     Indication: METASTATIC GASTRIC CANCER
     Dosage: 5 MG/M2, UNKNOWN
     Route: 065

REACTIONS (3)
  - Febrile neutropenia [Unknown]
  - Diarrhoea [Unknown]
  - Decreased appetite [Unknown]
